FAERS Safety Report 22296077 (Version 3)
Quarter: 2023Q2

REPORT INFORMATION
  Report Type: Spontaneous
  Country: US (occurrence: US)
  Receive Date: 20230508
  Receipt Date: 20230608
  Transmission Date: 20230721
  Serious: No
  Sender: FDA-Public Use
  Company Number: US-KARYOPHARM-2023KPT001190

PATIENT

DRUGS (21)
  1. XPOVIO [Suspect]
     Active Substance: SELINEXOR
     Indication: Plasma cell myeloma
     Dosage: 80 MG, WEEKLY
     Route: 048
     Dates: start: 20230424
  2. ACYCLOVIR [Concomitant]
     Active Substance: ACYCLOVIR
  3. AMOXICILLIN\CLAVULANATE POTASSIUM [Concomitant]
     Active Substance: AMOXICILLIN\CLAVULANATE POTASSIUM
  4. APREPITANT [Concomitant]
     Active Substance: APREPITANT
  5. AZITHROMYCIN [Concomitant]
     Active Substance: AZITHROMYCIN
  6. COSOPT [Concomitant]
     Active Substance: DORZOLAMIDE HYDROCHLORIDE\TIMOLOL MALEATE
  7. DEXAMETHASONE [Concomitant]
     Active Substance: DEXAMETHASONE
  8. DILTIAZEM [Concomitant]
     Active Substance: DILTIAZEM
  9. ELIQUIS [Concomitant]
     Active Substance: APIXABAN
  10. FLUCONAZOLE [Concomitant]
     Active Substance: FLUCONAZOLE
  11. LASIX [Concomitant]
     Active Substance: FUROSEMIDE
  12. LEVOFLOXACIN [Concomitant]
     Active Substance: LEVOFLOXACIN
  13. LORAZEPAM [Concomitant]
     Active Substance: LORAZEPAM
  14. ONDANSETRON HYDROCHLORIDE [Concomitant]
     Active Substance: ONDANSETRON HYDROCHLORIDE
  15. PANTOPRAZOLE SODIUM [Concomitant]
     Active Substance: PANTOPRAZOLE SODIUM
  16. POMALYST [Concomitant]
     Active Substance: POMALIDOMIDE
  17. PREDNISONE [Concomitant]
     Active Substance: PREDNISONE
  18. PROSCAR [Concomitant]
     Active Substance: FINASTERIDE
  19. XGEVA [Concomitant]
     Active Substance: DENOSUMAB
  20. OLANZAPINE [Concomitant]
     Active Substance: OLANZAPINE
  21. XTANDI [Concomitant]
     Active Substance: ENZALUTAMIDE

REACTIONS (8)
  - Hiccups [Not Recovered/Not Resolved]
  - Muscle spasms [Unknown]
  - Memory impairment [Unknown]
  - Balance disorder [Unknown]
  - Dysgeusia [Unknown]
  - Fatigue [Unknown]
  - Asthenia [Not Recovered/Not Resolved]
  - Decreased appetite [Unknown]

NARRATIVE: CASE EVENT DATE: 20230101
